FAERS Safety Report 6243562-4 (Version None)
Quarter: 2009Q2

REPORT INFORMATION
  Report Type: 
  Country: None (occurrence: None)
  Receive Date: 20090624
  Receipt Date: 20090622
  Transmission Date: 20091009
  Serious: Yes (Hospitalization, Other)
  Sender: FDA-Public Use
  Company Number: FR-JNJFOC-20081206775

PATIENT
  Age: 24 Year
  Sex: Female

DRUGS (18)
  1. TAVANIC [Suspect]
     Indication: DRUG USE FOR UNKNOWN INDICATION
     Route: 064
  2. IMODIUM [Suspect]
     Indication: DRUG USE FOR UNKNOWN INDICATION
     Route: 064
  3. TAZOCILLINE [Suspect]
     Indication: PYREXIA
     Route: 064
  4. VANCOMYCIN MERCK [Suspect]
     Indication: PYREXIA
     Route: 064
  5. SPASEON [Suspect]
     Indication: DRUG USE FOR UNKNOWN INDICATION
     Route: 064
  6. DEBRIDAT [Suspect]
     Indication: DRUG USE FOR UNKNOWN INDICATION
     Route: 064
  7. CONTRAMAL [Suspect]
     Indication: DRUG USE FOR UNKNOWN INDICATION
     Route: 064
  8. ACETAMINOPHEN [Suspect]
     Indication: DRUG USE FOR UNKNOWN INDICATION
     Route: 064
  9. ECONAZOLE SANDOZ [Suspect]
     Indication: DRUG USE FOR UNKNOWN INDICATION
     Route: 065
  10. ACUPAN [Suspect]
     Indication: DRUG USE FOR UNKNOWN INDICATION
     Route: 064
  11. ALUMINUM HYDROXIDE AND MAGNESIUM TRISILICATE [Suspect]
     Indication: DRUG USE FOR UNKNOWN INDICATION
     Route: 064
  12. AMIKACINE MERCK [Suspect]
     Indication: DRUG USE FOR UNKNOWN INDICATION
     Route: 064
  13. ATARAX [Suspect]
     Indication: DRUG USE FOR UNKNOWN INDICATION
     Route: 064
  14. CERUBIDINE [Suspect]
     Indication: ACUTE MYELOID LEUKAEMIA
     Route: 064
  15. TARGOCID [Suspect]
     Indication: DRUG USE FOR UNKNOWN INDICATION
     Route: 064
  16. PLITICAN [Suspect]
     Indication: DRUG USE FOR UNKNOWN INDICATION
     Route: 064
  17. PRIMPERAN [Suspect]
     Indication: DRUG USE FOR UNKNOWN INDICATION
     Route: 064
  18. ARACYTINE [Suspect]
     Indication: ACUTE MYELOID LEUKAEMIA
     Route: 064

REACTIONS (3)
  - APLASIA [None]
  - DRUG EXPOSURE DURING PREGNANCY [None]
  - PREMATURE LABOUR [None]
